FAERS Safety Report 9792491 (Version 1)
Quarter: 2013Q4

REPORT INFORMATION
  Report Type: Spontaneous
  Country: US (occurrence: None)
  Receive Date: 20131231
  Receipt Date: 20131231
  Transmission Date: 20140711
  Serious: Yes (Hospitalization, Disabling)
  Sender: FDA-Public Use
  Company Number: None

PATIENT
  Age: 78 Year
  Sex: Female
  Weight: 63.5 kg

DRUGS (8)
  1. ATORVASTATIN [Suspect]
     Indication: BLOOD CHOLESTEROL INCREASED
     Dosage: 1 PILL
     Route: 048
     Dates: start: 201106, end: 20131127
  2. SYNTHROID [Concomitant]
  3. RELAFIN [Concomitant]
  4. ESTROGEN-METHYLTESTOSTERONE [Concomitant]
  5. OMEGA 3 FISH OIL [Concomitant]
  6. ULTRA ONE MULTI-VITAMIN [Concomitant]
  7. OSTEO BI-FLEX [Concomitant]
  8. LUTEIN [Concomitant]

REACTIONS (5)
  - Fall [None]
  - Muscular weakness [None]
  - Walking aid user [None]
  - Muscle rupture [None]
  - Pain [None]
